FAERS Safety Report 5936153-3 (Version None)
Quarter: 2008Q4

REPORT INFORMATION
  Report Type: 
  Country: None (occurrence: None)
  Receive Date: 20081030
  Receipt Date: 20081021
  Transmission Date: 20090506
  Serious: Yes (Hospitalization)
  Sender: FDA-Public Use
  Company Number: US-PFIZER INC-2008079236

PATIENT
  Sex: Male
  Weight: 88.9 kg

DRUGS (3)
  1. SUTENT [Suspect]
     Indication: SMALL CELL LUNG CANCER STAGE UNSPECIFIED
     Dates: start: 20080918
  2. CARBOPLATIN [Suspect]
     Indication: SMALL CELL LUNG CANCER STAGE UNSPECIFIED
     Dosage: TEXT:456/122MG
     Dates: start: 20080905
  3. IRINOTECAN HCL [Suspect]
     Indication: SMALL CELL LUNG CANCER STAGE UNSPECIFIED
     Dosage: DAILY DOSE:122MG
     Dates: start: 20080905

REACTIONS (4)
  - HYPERKALAEMIA [None]
  - NEUTROPENIC SEPSIS [None]
  - RENAL FAILURE [None]
  - THROMBOCYTOPENIA [None]
